FAERS Safety Report 18893363 (Version 4)
Quarter: 2023Q2

REPORT INFORMATION
  Report Type: Report from Study
  Country: US (occurrence: US)
  Receive Date: 20210215
  Receipt Date: 20230421
  Transmission Date: 20230722
  Serious: Yes (Other)
  Sender: FDA-Public Use
  Company Number: US-SHIRE-US202003986

PATIENT
  Sex: Female

DRUGS (1)
  1. HUMAN IMMUNOGLOBULIN G [Suspect]
     Active Substance: HUMAN IMMUNOGLOBULIN G
     Indication: Immunodeficiency common variable
     Dosage: UNK
     Route: 042

REACTIONS (14)
  - Diabetes mellitus [Unknown]
  - Clostridium difficile colitis [Unknown]
  - Pneumonia [Not Recovered/Not Resolved]
  - Aortic dilatation [Unknown]
  - Illness [Unknown]
  - Fungal skin infection [Unknown]
  - Thyroid disorder [Unknown]
  - Emphysema [Unknown]
  - Nephropathy [Unknown]
  - Multiple allergies [Unknown]
  - Sinusitis [Unknown]
  - Somnolence [Unknown]
  - Asthenia [Unknown]
  - Fatigue [Unknown]
